FAERS Safety Report 17693400 (Version 3)
Quarter: 2020Q2

REPORT INFORMATION
  Report Type: Report from Study
  Country: BR (occurrence: BR)
  Receive Date: 20200422
  Receipt Date: 20200521
  Transmission Date: 20200714
  Serious: Yes (Other)
  Sender: FDA-Public Use
  Company Number: BR-JNJFOC-20200420563

PATIENT
  Sex: Male
  Weight: 96 kg

DRUGS (2)
  1. STELARA [Suspect]
     Active Substance: USTEKINUMAB
  2. STELARA [Suspect]
     Active Substance: USTEKINUMAB
     Indication: PSORIASIS
     Dosage: TWO 45 MG
     Route: 058
     Dates: start: 20191114

REACTIONS (3)
  - Hepatic cirrhosis [Unknown]
  - Nervousness [Unknown]
  - Psoriasis [Not Recovered/Not Resolved]
